FAERS Safety Report 18397136 (Version 1)
Quarter: 2020Q4

REPORT INFORMATION
  Report Type: Spontaneous
  Country: US (occurrence: US)
  Receive Date: 20201016
  Receipt Date: 20201016
  Transmission Date: 20210114
  Serious: Yes (Congenital Anomaly)
  Sender: FDA-Public Use
  Company Number: None

PATIENT
  Age: 27 Year
  Sex: Female
  Weight: 60.3 kg

DRUGS (1)
  1. TRIKAFTA [Suspect]
     Active Substance: ELEXACAFTOR\IVACAFTOR\TEZACAFTOR
     Indication: CYSTIC FIBROSIS
     Dates: start: 20191113

REACTIONS (16)
  - Cleft palate [None]
  - Foetal growth restriction [None]
  - Dextrocardia [None]
  - Cerebellar hypoplasia [None]
  - Maternal drugs affecting foetus [None]
  - Heart disease congenital [None]
  - Foetal cystic hygroma [None]
  - Musculoskeletal disorder [None]
  - Transposition of the great vessels [None]
  - Exposure during pregnancy [None]
  - Holoprosencephaly [None]
  - Cleft lip [None]
  - Foetal malformation [None]
  - Abortion induced [None]
  - Single functional kidney [None]
  - Pregnancy [None]

NARRATIVE: CASE EVENT DATE: 20200508
